FAERS Safety Report 6313495-3 (Version None)
Quarter: 2009Q3

REPORT INFORMATION
  Report Type: 
  Country: None (occurrence: None)
  Receive Date: 20090814
  Receipt Date: 20090814
  Transmission Date: 20100115
  Serious: Yes (Disabling)
  Sender: FDA-Public Use
  Company Number: None

PATIENT
  Age: 81 Year
  Sex: Male
  Weight: 85.2762 kg

DRUGS (2)
  1. LEVAQUIN [Suspect]
     Indication: LUNG NEOPLASM MALIGNANT
     Dosage: ONLY 5 PILLS DID NOT FINISH
     Dates: start: 20090512, end: 20090514
  2. LEVAQUIN [Suspect]
     Indication: PNEUMONIA
     Dosage: ONLY 5 PILLS DID NOT FINISH
     Dates: start: 20090512, end: 20090514

REACTIONS (2)
  - FALL [None]
  - TENDON RUPTURE [None]
